FAERS Safety Report 8508746-0 (Version None)
Quarter: 2012Q3

REPORT INFORMATION
  Report Type: 
  Country: None (occurrence: None)
  Receive Date: 20120713
  Receipt Date: 20120710
  Transmission Date: 20120928
  Serious: Yes (Other)
  Sender: FDA-Public Use
  Company Number: US-PFIZER INC-2012131705

PATIENT
  Sex: Male

DRUGS (4)
  1. CHANTIX [Suspect]
     Indication: SMOKING CESSATION THERAPY
     Dosage: UNK
     Route: 048
  2. RITALIN [Concomitant]
     Dosage: 40 MG IN THE MORNING
  3. METHADONE [Concomitant]
     Dosage: 10 MG, 4X/DAY
  4. KLONOPIN [Concomitant]
     Dosage: 2 MG, 4X/DAY

REACTIONS (2)
  - DRUG HYPERSENSITIVITY [None]
  - SUICIDAL IDEATION [None]
